FAERS Safety Report 19109723 (Version 10)
Quarter: 2021Q4

REPORT INFORMATION
  Report Type: Spontaneous
  Country: ES (occurrence: ES)
  Receive Date: 20210409
  Receipt Date: 20211013
  Transmission Date: 20220303
  Serious: Yes (Life-Threatening, Hospitalization, Other)
  Sender: FDA-Public Use
  Company Number: ES-LABALTER-2021000154

PATIENT
  Age: 44 Year
  Sex: Female

DRUGS (4)
  1. DULOXETINE [Suspect]
     Active Substance: DULOXETINE
     Indication: Product used for unknown indication
     Dosage: 30 MILLIGRAM, 3 PACKAGES OF DULOXETINE
     Route: 048
  2. DULOXETINE [Suspect]
     Active Substance: DULOXETINE
     Indication: Suicidal ideation
     Dosage: 80 DOSAGE FORM, ONCE A DAY
     Route: 048
  3. DULOXETINE [Suspect]
     Active Substance: DULOXETINE
     Dosage: UNK(3 BOXES )
     Route: 065
  4. LORAZEPAM [Concomitant]
     Active Substance: LORAZEPAM
     Indication: Mixed anxiety and depressive disorder
     Dosage: UNK
     Route: 065

REACTIONS (24)
  - Opsoclonus myoclonus [Recovered/Resolved]
  - Overdose [Recovered/Resolved]
  - Intentional overdose [Recovered/Resolved]
  - Pupillary reflex impaired [Recovered/Resolved]
  - Tachycardia [Recovered/Resolved]
  - Mydriasis [Recovered/Resolved]
  - Serotonin syndrome [Recovered/Resolved]
  - Hallucination [Recovered/Resolved]
  - Suicidal ideation [Unknown]
  - Delirium [Recovered/Resolved]
  - Intentional self-injury [Unknown]
  - Hallucination, visual [Recovered/Resolved]
  - Suicide attempt [Recovered/Resolved]
  - Delusional perception [Recovered/Resolved]
  - Delusion [Recovered/Resolved]
  - Vision blurred [Recovered/Resolved]
  - Dyskinesia [Recovered/Resolved]
  - Leukocytosis [Recovered/Resolved]
  - Self-injurious ideation [Recovered/Resolved]
  - Toxicity to various agents [Recovered/Resolved]
  - Disorientation [Recovered/Resolved]
  - Drug abuse [Unknown]
  - Tremor [Recovered/Resolved]
  - Gait disturbance [Recovered/Resolved]
